FAERS Safety Report 9816397 (Version 2)
Quarter: 2014Q2

REPORT INFORMATION
  Report Type: Spontaneous
  Country: IT (occurrence: IT)
  Receive Date: 20140114
  Receipt Date: 20140425
  Transmission Date: 20141212
  Serious: Yes (Death)
  Sender: FDA-Public Use
  Company Number: IT-ALEXION PHARMACEUTICALS INC.-A201304208

PATIENT
  Sex: 0

DRUGS (2)
  1. SOLIRIS 300MG [Suspect]
     Indication: VENOOCCLUSIVE LIVER DISEASE
     Dosage: 600 MG, SINGLE
     Route: 042
     Dates: start: 20131204, end: 20131204
  2. SOLIRIS 300MG [Suspect]
     Indication: OFF LABEL USE

REACTIONS (2)
  - Venoocclusive liver disease [Fatal]
  - Off label use [Unknown]
